FAERS Safety Report 9033741 (Version 1)
Quarter: 2013Q1

REPORT INFORMATION
  Report Type: Spontaneous
  Country: US (occurrence: US)
  Receive Date: 20130128
  Receipt Date: 20130128
  Transmission Date: 20140127
  Serious: Yes (Death, Hospitalization)
  Sender: FDA-Public Use
  Company Number: US-AMGEN-USASP2012068146

PATIENT
  Age: 77 Year
  Sex: Female

DRUGS (1)
  1. ENBREL [Suspect]
     Indication: RHEUMATOID ARTHRITIS
     Dosage: UNK
     Dates: start: 20030501, end: 201201

REACTIONS (5)
  - Post procedural complication [Fatal]
  - Gastrointestinal disorder [Fatal]
  - Cholecystitis infective [Fatal]
  - Constipation [Fatal]
  - Back disorder [Fatal]
